FAERS Safety Report 16285369 (Version 1)
Quarter: 2019Q2

REPORT INFORMATION
  Report Type: Spontaneous
  Country: AU (occurrence: AU)
  Receive Date: 20190508
  Receipt Date: 20190508
  Transmission Date: 20190711
  Serious: Yes (Death, Life-Threatening)
  Sender: FDA-Public Use
  Company Number: AU-FRESENIUS KABI-FK201905218

PATIENT
  Age: 46 Year
  Sex: Female

DRUGS (8)
  1. EPTACOG ALFA [Suspect]
     Active Substance: COAGULATION FACTOR VIIA RECOMBINANT HUMAN
     Indication: HAEMORRHAGE
     Dosage: 90U/KG
     Route: 065
  2. NOREPINEPHRINE BITARTRATE MONOHYDRATE [Concomitant]
     Indication: PRODUCT USED FOR UNKNOWN INDICATION
     Dosage: 8 MG/100 ML AT 10-50 ML/H
     Route: 065
  3. HEPARIN (MANUFACTURER UNKNOWN) [Suspect]
     Active Substance: HEPARIN SODIUM
     Indication: ANTICOAGULANT THERAPY
     Dosage: 20000 U
     Route: 065
  4. VASOPRESSIN. [Concomitant]
     Active Substance: VASOPRESSIN
     Indication: PRODUCT USED FOR UNKNOWN INDICATION
     Dosage: 2.4 UNITS/H
     Route: 065
  5. THROMBIN [Suspect]
     Active Substance: THROMBIN
     Indication: HAEMORRHAGE
     Dosage: UNKNOWN
     Route: 065
  6. NOREPINEPHRINE BITARTRATE MONOHYDRATE [Concomitant]
     Dosage: 50-75 ML/H (16 MG/100 ML)
     Route: 065
  7. PROTAMINE [Concomitant]
     Active Substance: PROTAMINE
     Indication: HAEMORRHAGE
     Dosage: UNKNOWN
     Route: 065
  8. VASOPRESSIN. [Concomitant]
     Active Substance: VASOPRESSIN
     Dosage: 6 UNITS/H
     Route: 065

REACTIONS (4)
  - Haemorrhage [Recovering/Resolving]
  - Intracardiac thrombus [Fatal]
  - Cardiac arrest [Fatal]
  - Ventricular failure [Fatal]
